FAERS Safety Report 7285157 (Version 9)
Quarter: 2013Q4

REPORT INFORMATION
  Report Type: Spontaneous
  Country: US (occurrence: US)
  Receive Date: 20100219
  Receipt Date: 20131202
  Transmission Date: 20140711
  Serious: Yes (Hospitalization, Other)
  Sender: FDA-Public Use
  Company Number: US-BAYER-201014075NA

PATIENT
  Age: 19 Year
  Sex: Female
  Weight: 62.27 kg

DRUGS (9)
  1. YAZ [Suspect]
     Indication: CONTRACEPTION
     Route: 048
     Dates: start: 2007, end: 2008
  2. YASMIN [Suspect]
     Indication: CONTRACEPTION
     Route: 048
  3. UNKNOWN DRUGS [Concomitant]
  4. LOESTRIN [Concomitant]
     Indication: CONTRACEPTION
     Route: 065
     Dates: start: 20090408, end: 20090729
  5. DESOGESTREL W/ETHINYLESTRADIOL [Concomitant]
     Indication: CONTRACEPTION
     Route: 065
     Dates: start: 20091228
  6. NSAID^S [Concomitant]
     Indication: PAIN
  7. CIPROFLOXACIN [Concomitant]
     Dates: start: 20080416
  8. PREVACID [Concomitant]
     Dosage: 30 MG, UNK
     Dates: end: 20080421
  9. ZYRTEC [CETIRIZINE HYDROCHLORIDE] [Concomitant]

REACTIONS (4)
  - Cholecystectomy [Unknown]
  - Hyperkalaemia [Unknown]
  - Renal disorder [Unknown]
  - Cholecystitis chronic [None]
